FAERS Safety Report 17455011 (Version 1)
Quarter: 2020Q1

REPORT INFORMATION
  Report Type: Spontaneous
  Country: PL (occurrence: PL)
  Receive Date: 20200225
  Receipt Date: 20200225
  Transmission Date: 20200409
  Serious: Yes (Death, Other)
  Sender: FDA-Public Use
  Company Number: PL-ASTELLAS-2020US007087

PATIENT
  Age: 66 Year
  Sex: Female

DRUGS (2)
  1. MYCOPHENOLATE MOFETIL. [Concomitant]
     Active Substance: MYCOPHENOLATE MOFETIL
     Indication: RENAL TRANSPLANT
     Dosage: UNK UNK, UNKNOWN FREQ.
     Route: 065
     Dates: start: 2015
  2. TACROLIMUS. [Suspect]
     Active Substance: TACROLIMUS
     Indication: RENAL TRANSPLANT
     Dosage: UNK UNK, UNKNOWN FREQ.
     Route: 065
     Dates: start: 2015

REACTIONS (6)
  - Bowen^s disease [Unknown]
  - Keratoacanthoma [Unknown]
  - Lung adenocarcinoma [Unknown]
  - Squamous cell carcinoma of skin [Unknown]
  - Respiratory failure [Fatal]
  - Basal cell carcinoma [Unknown]

NARRATIVE: CASE EVENT DATE: 2018
